FAERS Safety Report 6371209-5 (Version None)
Quarter: 2009Q3

REPORT INFORMATION
  Report Type: 
  Country: None (occurrence: None)
  Receive Date: 20090923
  Receipt Date: 20070723
  Transmission Date: 20100115
  Serious: Yes (Hospitalization, Other)
  Sender: FDA-Public Use
  Company Number: US-ASTRAZENECA-2007UW02167

PATIENT
  Age: 40 Year
  Sex: Male
  Weight: 142.4 kg

DRUGS (25)
  1. SEROQUEL [Suspect]
     Indication: BIPOLAR DISORDER
     Dosage: 200 MG - 400 MG
     Route: 048
     Dates: start: 20010820
  2. SEROQUEL [Suspect]
     Indication: SCHIZOPHRENIA
     Dosage: 200 MG - 400 MG
     Route: 048
     Dates: start: 20010820
  3. SEROQUEL [Suspect]
     Dosage: 200 MG - 400 MG
     Route: 048
     Dates: start: 20010820
  4. SEROQUEL [Suspect]
     Indication: DEPRESSION
     Dosage: 200 MG - 400 MG
     Route: 048
     Dates: start: 20010820
  5. SEROQUEL [Suspect]
     Indication: ANXIETY
     Dosage: 200 MG - 400 MG
     Route: 048
     Dates: start: 20010820
  6. SEROQUEL [Suspect]
     Dosage: 400-650 MG
     Route: 048
     Dates: start: 20020108
  7. SEROQUEL [Suspect]
     Dosage: 400-650 MG
     Route: 048
     Dates: start: 20020108
  8. SEROQUEL [Suspect]
     Dosage: 400-650 MG
     Route: 048
     Dates: start: 20020108
  9. SEROQUEL [Suspect]
     Dosage: 400-650 MG
     Route: 048
     Dates: start: 20020108
  10. SEROQUEL [Suspect]
     Dosage: 400-650 MG
     Route: 048
     Dates: start: 20020108
  11. XENICAL [Concomitant]
     Dates: start: 20020101
  12. XENICAL [Concomitant]
     Dates: start: 20030422
  13. GEODON [Concomitant]
     Indication: SCHIZOPHRENIA
     Dosage: 20-160 MG
     Dates: start: 20020601
  14. GEODON [Concomitant]
     Dosage: 80 MG, TWO IN THE MORNING AND ONE IN THE P.M.
     Dates: start: 20021016
  15. HALDOL [Concomitant]
     Dates: start: 20020901
  16. RISPERDAL [Concomitant]
     Dates: start: 19990901, end: 19991001
  17. OXYCONTIN [Concomitant]
     Indication: PAIN
     Dosage: 20 MG-160 MG
     Route: 048
     Dates: start: 19980612
  18. XANAX [Concomitant]
     Indication: ANXIETY
     Dosage: 1 MG- 4.5 MG
     Route: 048
     Dates: start: 19971001
  19. XANAX [Concomitant]
     Indication: DEPRESSION
     Dosage: 1 MG- 4.5 MG
     Route: 048
     Dates: start: 19971001
  20. PAXIL [Concomitant]
     Indication: ANXIETY
     Route: 048
     Dates: start: 19990818
  21. PAXIL [Concomitant]
     Indication: DEPRESSION
     Route: 048
     Dates: start: 19990818
  22. LASIX [Concomitant]
     Indication: OEDEMA PERIPHERAL
     Dosage: 40 MG-60 MG
     Route: 048
     Dates: start: 19990818, end: 20020816
  23. CELEBREX [Concomitant]
     Dosage: 100 MG-400 MG
     Route: 048
     Dates: start: 19990816
  24. CELEXA [Concomitant]
     Indication: SCHIZOPHRENIA
     Dosage: 20 MG-40 MG
     Route: 048
     Dates: start: 20030307
  25. RESTORIL [Concomitant]
     Indication: DEPRESSION
     Route: 048
     Dates: start: 19990816

REACTIONS (4)
  - COUGH [None]
  - DIABETES MELLITUS INADEQUATE CONTROL [None]
  - DIABETIC COMA [None]
  - TYPE 2 DIABETES MELLITUS [None]
